FAERS Safety Report 20197308 (Version 1)
Quarter: 2021Q4

REPORT INFORMATION
  Report Type: Spontaneous
  Country: US (occurrence: US)
  Receive Date: 20211217
  Receipt Date: 20211217
  Transmission Date: 20220303
  Serious: Yes (Other)
  Sender: FDA-Public Use
  Company Number: US-JNJFOC-20211222656

PATIENT

DRUGS (3)
  1. NEUTROGENA ULTRA SHEER FACE MIST SUNSCREEN BROAD SPECTRUM SPF 55 [Suspect]
     Active Substance: AVOBENZONE\HOMOSALATE\OCTISALATE\OCTOCRYLENE
     Indication: Product used for unknown indication
     Route: 061
  2. NEUTROGENA ULTRA SHEER BODY MIST SUNSCREEN BROAD SPECTRUM SPF 45 (AVO\ [Suspect]
     Active Substance: AVOBENZONE\HOMOSALATE\OCTISALATE\OCTOCRYLENE
     Indication: Product used for unknown indication
     Route: 061
  3. NEUTROGENA T/GEL THERAPEUTIC [Suspect]
     Active Substance: COAL TAR\PYRITHIONE ZINC\SALICYLIC ACID
     Indication: Product used for unknown indication
     Route: 061

REACTIONS (1)
  - Skin cancer [Unknown]

NARRATIVE: CASE EVENT DATE: 20201026
